FAERS Safety Report 6991333-3 (Version None)
Quarter: 2010Q3

REPORT INFORMATION
  Report Type: 
  Country: None (occurrence: None)
  Receive Date: 20100916
  Receipt Date: 20090730
  Transmission Date: 20110219
  Serious: Yes (Other)
  Sender: FDA-Public Use
  Company Number: US-WYE-H10424709

PATIENT
  Age: 73 Year
  Sex: Male
  Weight: 86.26 kg

DRUGS (28)
  1. TORISEL [Suspect]
     Indication: RENAL CELL CARCINOMA
     Route: 042
     Dates: start: 20090717
  2. MIRTAZAPINE [Concomitant]
     Route: 048
  3. ASPIRIN [Concomitant]
     Route: 048
  4. ADVAIR DISKUS 100/50 [Concomitant]
     Dosage: 500/50 BID
     Route: 055
  5. MAGNESIUM CHLORIDE ANHYDROUS [Concomitant]
     Dosage: MAG 64 535 (64 MG) TABLET, CONTROLLED RELEASE BID
     Route: 048
  6. KLOR-CON [Concomitant]
     Route: 048
  7. FUROSEMIDE [Concomitant]
     Route: 048
  8. XOPENEX [Concomitant]
     Route: 055
  9. ATROPINE SULFATE/DIPHENOXYLATE [Concomitant]
     Dosage: 1 TABLET EVERY 1 PRN
     Route: 048
  10. ALLOPURINOL [Concomitant]
     Dosage: 0.5 (300 MG) TABLET DAILY
     Route: 048
  11. SPIRIVA [Concomitant]
     Route: 055
  12. TEMAZEPAM [Concomitant]
     Dosage: 2 (15 MG) CAPSULE DAILY
     Route: 048
  13. TEMAZEPAM [Concomitant]
     Dosage: 15 MG CAPSULE AS DIRECTED
     Route: 048
  14. DILTIAZEM [Concomitant]
     Dosage: HCL 120 (30 MG) TABLE DAILY
     Route: 048
  15. ALBUTEROL [Concomitant]
     Dosage: 2 PUFFS AEROSOL PRN
     Route: 055
  16. FLOMAX [Concomitant]
     Route: 048
  17. SIMVASTATIN [Concomitant]
     Route: 048
  18. NEXIUM [Concomitant]
     Route: 048
  19. CALCIUM [Concomitant]
     Route: 048
  20. PREDNISONE [Concomitant]
     Route: 048
  21. AREDIA [Concomitant]
     Dosage: ONCE Q4 WEEKS
     Route: 042
  22. HYDROMORPHONE HYDROCHLORIDE [Concomitant]
     Route: 048
  23. BENADRYL [Concomitant]
     Route: 042
  24. ZOFRAN [Concomitant]
     Dosage: 16 MG OVER 15 MIN FOR 1 DAY IN NSS 100ML
     Route: 042
  25. NORMAL SALINE [Concomitant]
     Route: 042
  26. LIDODERM [Concomitant]
     Route: 061
  27. DARBEPOETIN ALFA [Concomitant]
     Dosage: 500 MCG INJECTION Q3 WEEKS
  28. SYNTHROID [Concomitant]
     Route: 048

REACTIONS (3)
  - FATIGUE [None]
  - NEUTROPENIA [None]
  - PYREXIA [None]
